FAERS Safety Report 10385595 (Version 1)
Quarter: 2014Q3

REPORT INFORMATION
  Report Type: Spontaneous
  Country: FR (occurrence: None)
  Receive Date: 20140812
  Receipt Date: 20140812
  Transmission Date: 20150326
  Serious: Yes (Other)
  Sender: FDA-Public Use
  Company Number: AUR-APL-2014-08559

PATIENT
  Age: 82 Year
  Sex: Male

DRUGS (15)
  1. SERTRALINE [Suspect]
     Active Substance: SERTRALINE HYDROCHLORIDE
     Indication: DEPRESSION
     Route: 048
     Dates: start: 20140516, end: 20140516
  2. SOLUPRED (PREDNISOLONE) [Concomitant]
     Active Substance: PREDNISOLONE
  3. DAFALGAN (PARACETAMOL) [Concomitant]
  4. SEROPLEX (ESCITALOPRAM OXALATE) [Concomitant]
     Active Substance: ESCITALOPRAM OXALATE
  5. ZOLPIDEM [Suspect]
     Active Substance: ZOLPIDEM\ZOLPIDEM TARTRATE
     Indication: DEPRESSION
     Route: 048
     Dates: start: 20140515, end: 20140516
  6. XATRAL (ALFUZOSIN HYDROCHLORIDE) [Concomitant]
  7. LANSOYL (PARAFFIN, LIQUID) [Concomitant]
  8. SOLU-MEDROL [Concomitant]
     Active Substance: METHYLPREDNISOLONE SODIUM SUCCINATE
  9. NORSET [Suspect]
     Active Substance: MIRTAZAPINE
     Indication: DEPRESSION
     Route: 048
     Dates: start: 20140515, end: 20140516
  10. TRANSIPEG (MACROGOL) [Concomitant]
  11. SOLIAN [Suspect]
     Active Substance: AMISULPRIDE
     Indication: DEPRESSION
     Route: 048
     Dates: start: 20140515, end: 20140516
  12. CETIRIZINE (CETIRIZINE) [Concomitant]
     Active Substance: CETIRIZINE HYDROCHLORIDE
  13. ATARAX [Concomitant]
     Active Substance: HYDROXYZINE\HYDROXYZINE HYDROCHLORIDE
  14. LEXOMIL (BROMAZEPAM) [Concomitant]
     Active Substance: BROMAZEPAM
  15. NORMACOL LAVEMENT ADULTES [Concomitant]

REACTIONS (7)
  - Depressed mood [None]
  - Enlarged uvula [None]
  - Atrioventricular block first degree [None]
  - Inflammation [None]
  - Bradycardia [None]
  - Dyspnoea [None]
  - Tonsillar disorder [None]

NARRATIVE: CASE EVENT DATE: 20140516
